FAERS Safety Report 5953707-9 (Version None)
Quarter: 2008Q4

REPORT INFORMATION
  Report Type: 
  Country: None (occurrence: None)
  Receive Date: 20081114
  Receipt Date: 20081111
  Transmission Date: 20090506
  Serious: Yes (Hospitalization)
  Sender: FDA-Public Use
  Company Number: JP-EISAI MEDICAL RESEARCH-E2090-00588-SPO-JP

PATIENT
  Age: 46 Year
  Sex: Female

DRUGS (3)
  1. EXCEGRAN [Suspect]
     Indication: EPILEPSY
     Route: 048
     Dates: start: 20080101
  2. EXCEGRAN [Suspect]
     Indication: PETIT MAL EPILEPSY
  3. DEPAKENE [Concomitant]
     Route: 048

REACTIONS (5)
  - DECREASED APPETITE [None]
  - HEPATIC FUNCTION ABNORMAL [None]
  - MALAISE [None]
  - RASH [None]
  - STOMATITIS [None]
